FAERS Safety Report 8623387-2 (Version None)
Quarter: 2012Q3

REPORT INFORMATION
  Report Type: 
  Country: None (occurrence: None)
  Receive Date: 20120827
  Receipt Date: 20120816
  Transmission Date: 20120928
  Serious: Yes (Hospitalization)
  Sender: FDA-Public Use
  Company Number: US-BRISTOL-MYERS SQUIBB COMPANY-16703621

PATIENT
  Age: 62 Year
  Sex: Male

DRUGS (1)
  1. YERVOY [Suspect]
     Indication: MALIGNANT MELANOMA
     Dosage: HAD ANOTHER INF ON 31MAY12 NO OF INF:03
     Route: 042
     Dates: start: 20120508

REACTIONS (11)
  - NEOPLASM MALIGNANT [None]
  - VISION BLURRED [None]
  - VOMITING [None]
  - PYREXIA [None]
  - CONSTIPATION [None]
  - LACRIMATION INCREASED [None]
  - HEADACHE [None]
  - BLOOD THYROID STIMULATING HORMONE DECREASED [None]
  - NAUSEA [None]
  - ABDOMINAL PAIN [None]
  - DIARRHOEA [None]
